FAERS Safety Report 4758424-9 (Version None)
Quarter: 2005Q3

REPORT INFORMATION
  Report Type: 
  Country: None (occurrence: None)
  Receive Date: 20050826
  Receipt Date: 20050812
  Transmission Date: 20060218
  Serious: Yes (Death)
  Sender: FDA-Public Use
  Company Number: 050824-0000703

PATIENT

DRUGS (5)
  1. PENTOBARBITAL SODIUM [Suspect]
     Indication: STATUS EPILEPTICUS
     Dosage: SEE IMAGE, IV
     Route: 042
  2. MIDAZOLAM HCL [Suspect]
     Indication: STATUS EPILEPTICUS
     Dosage: SEE IMAGE
  3. PHENYTOIN [Suspect]
     Indication: STATUS EPILEPTICUS
     Dosage: 20 MG/KG; 1X; IV
     Route: 042
  4. PHENOBARBITAL TAB [Suspect]
     Indication: STATUS EPILEPTICUS
     Dosage: 20 MG/KG; X1; IV
     Route: 042
  5. DIAZEPAM [Suspect]
     Indication: STATUS EPILEPTICUS
     Dosage: RTL
     Route: 054

REACTIONS (1)
  - DEATH [None]
